FAERS Safety Report 9583075 (Version 1)
Quarter: 2013Q4

REPORT INFORMATION
  Report Type: Spontaneous
  Country: US (occurrence: US)
  Receive Date: 20131002
  Receipt Date: 20131002
  Transmission Date: 20140711
  Serious: No
  Sender: FDA-Public Use
  Company Number: US-AMGEN-USASP2013044807

PATIENT
  Age: 53 Year
  Sex: Female
  Weight: 72.56 kg

DRUGS (1)
  1. ENBREL [Suspect]
     Indication: PRODUCT USED FOR UNKNOWN INDICATION
     Dosage: 50 MG, 2 TIMES/WK
     Route: 058

REACTIONS (3)
  - Injection site pain [Recovering/Resolving]
  - Injection site urticaria [Recovering/Resolving]
  - Psoriasis [Unknown]
